FAERS Safety Report 15005429 (Version 1)
Quarter: 2018Q2

REPORT INFORMATION
  Report Type: Spontaneous
  Country: US (occurrence: US)
  Receive Date: 20180521
  Receipt Date: 20180521
  Transmission Date: 20180711
  Serious: Yes (Hospitalization)
  Sender: FDA-Public Use
  Company Number: None

PATIENT
  Age: 59 Year
  Sex: Male
  Weight: 174.7 kg

DRUGS (13)
  1. BACLOFEN. [Suspect]
     Active Substance: BACLOFEN
  2. MIRA [Concomitant]
  3. LAX [Concomitant]
  4. ROBAXIN [Suspect]
     Active Substance: METHOCARBAMOL
  5. TRAZODONE [Suspect]
     Active Substance: TRAZODONE HYDROCHLORIDE
  6. THERAGRAN [Concomitant]
     Active Substance: VITAMINS
  7. TOPAMAX [Concomitant]
     Active Substance: TOPIRAMATE
  8. PERCOCET [Suspect]
     Active Substance: ACETAMINOPHEN\OXYCODONE HYDROCHLORIDE
     Indication: DENTAL OPERATION
  9. METHADONE [Suspect]
     Active Substance: METHADONE HYDROCHLORIDE
     Indication: BACK PAIN
     Route: 048
  10. VITB12 [Concomitant]
  11. AMPHETAMINE [Concomitant]
     Active Substance: AMPHETAMINE
  12. VITD, [Concomitant]
  13. BELVIQ [Concomitant]
     Active Substance: LORCASERIN HYDROCHLORIDE

REACTIONS (6)
  - Accidental overdose [None]
  - Haemodialysis [None]
  - Agitation [None]
  - Seizure [None]
  - Toxicity to various agents [None]
  - Acute kidney injury [None]

NARRATIVE: CASE EVENT DATE: 20180207
